FAERS Safety Report 8955355 (Version 1)
Quarter: 2012Q4

REPORT INFORMATION
  Report Type: 
  Country: DE (occurrence: FR)
  Receive Date: 20121207
  Receipt Date: 20121207
  Transmission Date: 20130627
  Serious: Yes (Other)
  Sender: FDA-Public Use
  Company Number: FR-BRISTOL-MYERS SQUIBB COMPANY-17165671

PATIENT
  Sex: Male

DRUGS (2)
  1. ABILIFY TABS [Suspect]
     Indication: PSYCHOTIC DISORDER
     Route: 048
  2. ABILIFY TABS [Suspect]
     Indication: MENTAL RETARDATION
     Route: 048

REACTIONS (2)
  - Lung disorder [Unknown]
  - Pulmonary embolism [Unknown]
